FAERS Safety Report 17889713 (Version 9)
Quarter: 2020Q3

REPORT INFORMATION
  Report Type: Report from Study
  Country: DE (occurrence: DE)
  Receive Date: 20200612
  Receipt Date: 20200825
  Transmission Date: 20201105
  Serious: Yes (Other)
  Sender: FDA-Public Use
  Company Number: DE-ALNYLAM PHARMACEUTICALS, INC.-ALN-2020-000880

PATIENT

DRUGS (9)
  1. GIVOSIRAN. [Suspect]
     Active Substance: GIVOSIRAN
     Indication: PORPHYRIA ACUTE
     Dosage: 2.5 MILLIGRAM/KILOGRAM, MONTHLY
     Route: 058
     Dates: start: 20190619
  2. NORMOSANG [Concomitant]
     Active Substance: HEME
     Dosage: 500 MILLIGRAM, QD
     Route: 042
     Dates: start: 20180301
  3. LORAZEPAM. [Concomitant]
     Active Substance: LORAZEPAM
     Indication: PALPITATIONS
     Dosage: 0.5 MILLIGRAM, PRN
     Route: 048
     Dates: start: 20181219
  4. NORMOSANG [Concomitant]
     Active Substance: HEME
     Indication: PORPHYRIA ACUTE
     Dosage: 500 MILLIGRAM, QD
     Route: 042
     Dates: start: 20180508
  5. CETIRIZIN [Concomitant]
     Active Substance: CETIRIZINE HYDROCHLORIDE
     Indication: PROPHYLAXIS
     Dosage: 10 MILLIGRAM, SINGLE
     Route: 048
     Dates: start: 20200531, end: 20200602
  6. GIVOSIRAN. [Suspect]
     Active Substance: GIVOSIRAN
     Dosage: 1.25 MILLIGRAM/KILOGRAM, MONTHLY
     Route: 058
     Dates: start: 20181127, end: 20190528
  7. HYDROCORTISONE. [Concomitant]
     Active Substance: HYDROCORTISONE
     Indication: INJECTION SITE REACTION
     Dosage: 5 MG/G, PRN
     Route: 061
     Dates: start: 20190605
  8. LORAZEPAM. [Concomitant]
     Active Substance: LORAZEPAM
     Indication: SLEEP DISORDER
  9. FOLSAN [Concomitant]
     Active Substance: FOLIC ACID
     Indication: FOLATE DEFICIENCY
     Dosage: 5 MILLIGRAM, QD
     Route: 048
     Dates: start: 20190307

REACTIONS (2)
  - Hypersensitivity [Not Recovered/Not Resolved]
  - Blood homocysteine increased [Not Recovered/Not Resolved]

NARRATIVE: CASE EVENT DATE: 20200602
